FAERS Safety Report 7575382-2 (Version None)
Quarter: 2011Q2

REPORT INFORMATION
  Report Type: 
  Country: None (occurrence: None)
  Receive Date: 20110627
  Receipt Date: 20110120
  Transmission Date: 20111010
  Serious: Yes (Hospitalization, Other)
  Sender: FDA-Public Use
  Company Number: US-BAYER-200941671NA

PATIENT
  Age: 45 Year
  Sex: Female
  Weight: 72.562 kg

DRUGS (4)
  1. ALDACTONE [Concomitant]
     Indication: ACNE
     Dosage: 50 MG, QD
     Dates: start: 20040101
  2. ACYCLOVIR [Concomitant]
     Indication: HERPES OPHTHALMIC
     Dosage: UNK
     Dates: start: 20040101
  3. THYROID TAB [Concomitant]
     Indication: HYPOTHYROIDISM
     Dosage: 90 MG, QD
     Dates: start: 20020101
  4. YASMIN [Suspect]
     Indication: ACNE
     Dosage: UNK
     Route: 048
     Dates: start: 20080801, end: 20081016

REACTIONS (18)
  - MYOCARDIAL INFARCTION [None]
  - CARDIOVASCULAR DISORDER [None]
  - BACK PAIN [None]
  - GRIEF REACTION [None]
  - CHEST PAIN [None]
  - DYSPNOEA [None]
  - POST THROMBOTIC SYNDROME [None]
  - PAIN IN EXTREMITY [None]
  - OEDEMA PERIPHERAL [None]
  - FEAR [None]
  - DEEP VEIN THROMBOSIS [None]
  - PULMONARY EMBOLISM [None]
  - PULMONARY HYPERTENSION [None]
  - PERIPHERAL COLDNESS [None]
  - PULMONARY INFARCTION [None]
  - ANXIETY [None]
  - DEPRESSION [None]
  - MENTAL DISORDER [None]
